FAERS Safety Report 4277692-3 (Version None)
Quarter: 2004Q1

REPORT INFORMATION
  Report Type: 
  Country: None (occurrence: None)
  Receive Date: 20040121
  Receipt Date: 20040105
  Transmission Date: 20041129
  Serious: Yes (Other)
  Sender: FDA-Public Use
  Company Number: AU_031207309

PATIENT
  Age: 73 Year
  Sex: Female

DRUGS (7)
  1. FORTEO [Suspect]
     Indication: OSTEOPOROSIS
     Dosage: 20 UG/DAY
     Dates: start: 20031125, end: 20031203
  2. NARDIL [Concomitant]
  3. LOSEC [Concomitant]
  4. MOBIC [Concomitant]
  5. CLONAZEPAM [Concomitant]
  6. QUININE BISULFATE [Concomitant]
  7. METOPROLOL TARTRATE [Concomitant]

REACTIONS (2)
  - CONFUSIONAL STATE [None]
  - COORDINATION ABNORMAL [None]
